FAERS Safety Report 5929811-8 (Version None)
Quarter: 2008Q4

REPORT INFORMATION
  Report Type: 
  Country: None (occurrence: None)
  Receive Date: 20081024
  Receipt Date: 20081013
  Transmission Date: 20090506
  Serious: Yes (Other)
  Sender: FDA-Public Use
  Company Number: US-CVT-080084

PATIENT

DRUGS (7)
  1. RANEXA [Suspect]
     Indication: DRUG USE FOR UNKNOWN INDICATION
     Dosage: 500 MG, BID
     Route: 048
  2. ASPIRIN [Concomitant]
     Dosage: 81 MG, UNK
  3. PLAVIX [Concomitant]
     Dosage: 75 MG, QD
     Route: 048
  4. ISOSORBIDE MONONITRATE [Concomitant]
     Dosage: 60 MG, QD
     Route: 048
  5. METOPROLOL                         /00376901/ [Concomitant]
     Dosage: 50 MG, BID
     Route: 048
  6. NITROGLYCERIN [Concomitant]
     Dosage: 0.4 MG, UNK
     Route: 060
  7. LIPITOR                            /01326101/ [Concomitant]
     Indication: DRUG USE FOR UNKNOWN INDICATION
     Dosage: 20 MG, QD
     Route: 048

REACTIONS (2)
  - ANGER [None]
  - NEOPLASM MALIGNANT [None]
